FAERS Safety Report 7378381-9 (Version None)
Quarter: 2011Q1

REPORT INFORMATION
  Report Type: 
  Country: None (occurrence: None)
  Receive Date: 20110328
  Receipt Date: 20091031
  Transmission Date: 20110831
  Serious: Yes (Death, Hospitalization, Other)
  Sender: FDA-Public Use
  Company Number: US-BAYER-200937887NA

PATIENT
  Sex: Female
  Weight: 68.027 kg

DRUGS (21)
  1. TRASYLOL [Suspect]
     Indication: CORONARY ARTERY BYPASS
     Dosage: 200 LOADING DOSE
     Route: 042
     Dates: start: 20061017, end: 20061017
  2. NITROGLYCERIN [Concomitant]
     Dosage: PASTE
     Route: 061
     Dates: start: 20061011
  3. SCOPOLAMINE [Concomitant]
     Dosage: 0.3 MG, UNK
     Route: 042
     Dates: start: 20061017
  4. PLASMA [Concomitant]
  5. NITROGLYCERIN [Concomitant]
     Dosage: DRIP
     Route: 042
     Dates: start: 20061011
  6. NEO-SYNEPHRINOL [Concomitant]
     Dosage: UNK
     Route: 042
     Dates: start: 20061017
  7. PLATELETS [Concomitant]
  8. INDERAL [Concomitant]
     Dosage: 20 MG, QD
     Route: 048
     Dates: start: 20000417
  9. ACETYLSALICYLIC ACID SRT [Concomitant]
     Dosage: 81 MG, QD
     Route: 048
  10. LOPRESSOR [Concomitant]
     Dosage: 25 MG, BID
     Route: 048
     Dates: start: 20061011
  11. SOLU-MEDROL [Concomitant]
     Dosage: UNK
     Route: 042
     Dates: start: 20061017
  12. MAGNESIUM [MAGNESIUM] [Concomitant]
     Dosage: 1 G, UNK
     Route: 042
     Dates: start: 20061017
  13. TRASYLOL [Suspect]
     Indication: INTRA-AORTIC BALLOON PLACEMENT
     Dosage: 25 ML, Q1HR
     Route: 042
     Dates: start: 20061017, end: 20061017
  14. RED BLOOD CELLS [Concomitant]
  15. LOVENOX [Concomitant]
     Dosage: UNK
     Route: 058
     Dates: start: 20061011
  16. KEFZOL [Concomitant]
     Dosage: 1 G, UNK
     Route: 042
     Dates: start: 20061017
  17. VANCOMYCIN [Concomitant]
     Dosage: 1 G, UNK
     Route: 042
     Dates: start: 20061017
  18. MAXZIDE [Concomitant]
     Dosage: 75/ 50 MG DAILY
     Route: 048
     Dates: start: 19991218
  19. PLAVIX [Concomitant]
     Dosage: 75 MG, QD
     Route: 048
     Dates: start: 20061011
  20. INTEGRILIN [Concomitant]
     Dosage: UNK
     Route: 042
     Dates: start: 20061011
  21. EPINEPHRINE [Concomitant]
     Dosage: DRIP
     Route: 042
     Dates: start: 20061017

REACTIONS (8)
  - ANHEDONIA [None]
  - UNEVALUABLE EVENT [None]
  - MYOCARDIAL INFARCTION [None]
  - DEPRESSION [None]
  - INJURY [None]
  - FEAR [None]
  - PAIN [None]
  - ANXIETY [None]
